FAERS Safety Report 20758229 (Version 5)
Quarter: 2022Q2

REPORT INFORMATION
  Report Type: Spontaneous
  Country: CA (occurrence: CA)
  Receive Date: 20220427
  Receipt Date: 20220629
  Transmission Date: 20220720
  Serious: Yes (Other)
  Sender: FDA-Public Use
  Company Number: CA-PFIZER INC-202200276293

PATIENT
  Age: 56 Year
  Sex: Female

DRUGS (5)
  1. SOMAVERT [Suspect]
     Active Substance: PEGVISOMANT
     Indication: Acromegaly
     Dosage: 30 MG, 1X/DAY
     Route: 058
     Dates: start: 20220308
  2. CORTEF [Concomitant]
     Active Substance: HYDROCORTISONE
     Dosage: 15 MG, DAILY
  3. FISH OIL [Concomitant]
     Active Substance: FISH OIL
     Dosage: UNK
  4. SANDOSTATIN LAR DEPOT [Concomitant]
     Active Substance: OCTREOTIDE ACETATE
     Dosage: 40 MG EVERY 4 WEEKS
  5. CHOLECALCIFEROL [Concomitant]
     Active Substance: CHOLECALCIFEROL
     Dosage: UNK

REACTIONS (13)
  - Arthritis [Unknown]
  - Injection site pain [Unknown]
  - Weight increased [Not Recovered/Not Resolved]
  - Abdominal distension [Unknown]
  - Pain [Not Recovered/Not Resolved]
  - Nausea [Unknown]
  - Mobility decreased [Unknown]
  - Injection site bruising [Unknown]
  - Frustration tolerance decreased [Unknown]
  - Loss of personal independence in daily activities [Unknown]
  - Nasal congestion [Not Recovered/Not Resolved]
  - Device difficult to use [Unknown]
  - Off label use [Unknown]

NARRATIVE: CASE EVENT DATE: 20220530
